FAERS Safety Report 15371416 (Version 1)
Quarter: 2018Q3

REPORT INFORMATION
  Report Type: Spontaneous
  Country: DE (occurrence: DE)
  Receive Date: 20180911
  Receipt Date: 20180911
  Transmission Date: 20181010
  Serious: Yes (Hospitalization, Other)
  Sender: FDA-Public Use
  Company Number: PHHY2018DE040946

PATIENT
  Age: 66 Year
  Sex: Female

DRUGS (11)
  1. CLINDAMYCIN. [Suspect]
     Active Substance: CLINDAMYCIN
     Indication: ENTEROCOCCAL INFECTION
     Dosage: 1800 MG, TID
     Route: 048
  2. PIPERACILLIN [Suspect]
     Active Substance: PIPERACILLIN
     Indication: STAPHYLOCOCCAL INFECTION
  3. TAZOBACTAM [Suspect]
     Active Substance: TAZOBACTAM
     Indication: ENTEROCOCCAL INFECTION
  4. PIPERACILLIN [Suspect]
     Active Substance: PIPERACILLIN
     Indication: PROTEUS INFECTION
     Dosage: 13.5 G, TID
     Route: 042
  5. PIPERACILLIN [Suspect]
     Active Substance: PIPERACILLIN
     Indication: MEDICAL DEVICE SITE JOINT INFECTION
     Dosage: 4.5 MG, (3 DAY)
     Route: 042
  6. TAZOBACTAM [Suspect]
     Active Substance: TAZOBACTAM
     Indication: STAPHYLOCOCCAL INFECTION
     Dosage: 13.5 G, TID
     Route: 042
  7. CLINDAMYCIN. [Suspect]
     Active Substance: CLINDAMYCIN
     Indication: MEDICAL DEVICE SITE JOINT INFECTION
     Dosage: 600 MG, (3 DAY)
     Route: 048
  8. PIPERACILLIN [Suspect]
     Active Substance: PIPERACILLIN
     Indication: ENTEROCOCCAL INFECTION
  9. TAZOBACTAM [Suspect]
     Active Substance: TAZOBACTAM
     Indication: MEDICAL DEVICE SITE JOINT INFECTION
     Dosage: 4.5 MG, (3 DAY)
     Route: 042
  10. CLINDAMYCIN. [Suspect]
     Active Substance: CLINDAMYCIN
     Indication: PROTEUS INFECTION
  11. CLINDAMYCIN. [Suspect]
     Active Substance: CLINDAMYCIN
     Indication: STAPHYLOCOCCAL INFECTION

REACTIONS (2)
  - Pyrexia [Recovered/Resolved]
  - Chills [Recovered/Resolved]
